FAERS Safety Report 10744393 (Version 1)
Quarter: 2015Q1

REPORT INFORMATION
  Report Type: Spontaneous
  Country: US (occurrence: None)
  Receive Date: 20150126
  Receipt Date: 20150126
  Transmission Date: 20150721
  Serious: No
  Sender: FDA-Public Use
  Company Number: None

PATIENT
  Age: 33 Year
  Sex: Female
  Weight: 55.79 kg

DRUGS (1)
  1. LINZESS [Suspect]
     Active Substance: LINACLOTIDE
     Indication: CONSTIPATION
     Dosage: 2 PILLS DAILY ONCE DAILY TAKEN BY MOUTH
     Route: 048
     Dates: start: 20150116, end: 20150123

REACTIONS (3)
  - Diarrhoea [None]
  - Muscle spasms [None]
  - Abdominal distension [None]

NARRATIVE: CASE EVENT DATE: 20150122
